FAERS Safety Report 9772536 (Version 4)
Quarter: 2014Q1

REPORT INFORMATION
  Report Type: Report from Study
  Country: IT (occurrence: IT)
  Receive Date: 20131219
  Receipt Date: 20140319
  Transmission Date: 20141002
  Serious: Yes (Death, Life-Threatening, Hospitalization)
  Sender: FDA-Public Use
  Company Number: IT-INCYTE CORPORATION-2013IN002245

PATIENT
  Age: 73 Year
  Sex: Male
  Weight: 57 kg

DRUGS (8)
  1. LBH589 [Suspect]
     Indication: MYELOFIBROSIS
     Dosage: 25 MG, TIW QOW
     Route: 048
     Dates: start: 20130705, end: 20131111
  2. INC424 [Suspect]
     Indication: MYELOFIBROSIS
     Dosage: 15 MG, BID
     Route: 048
     Dates: start: 20130704, end: 20131118
  3. ASPIRIN [Concomitant]
     Dosage: UNK
     Dates: start: 20110627
  4. FINASTERIDE [Concomitant]
     Dosage: UNK
  5. TAMSULOSIN [Concomitant]
     Dosage: UNK
  6. PANTOPRAZOLE [Concomitant]
     Dosage: UNK
  7. MOVICOL [Concomitant]
     Dosage: UNK
     Dates: start: 20130811
  8. ALLOPURINOL [Concomitant]
     Dosage: UNK

REACTIONS (4)
  - Diffuse large B-cell lymphoma [Fatal]
  - Second primary malignancy [Fatal]
  - Splenic infarction [Recovered/Resolved]
  - Staphylococcal sepsis [Recovered/Resolved]
